FAERS Safety Report 23392648 (Version 1)
Quarter: 2024Q1

REPORT INFORMATION
  Report Type: Spontaneous
  Country: US (occurrence: None)
  Receive Date: 20240111
  Receipt Date: 20240111
  Transmission Date: 20240410
  Serious: Yes (Other)
  Sender: FDA-Public Use
  Company Number: 2024A004585

PATIENT
  Sex: Male

DRUGS (6)
  1. FARXIGA [Suspect]
     Active Substance: DAPAGLIFLOZIN PROPANEDIOL
     Indication: Product used for unknown indication
     Route: 048
  2. METFORMIN [Suspect]
     Active Substance: METFORMIN HYDROCHLORIDE
     Indication: Glucose tolerance impaired
     Route: 048
  3. RYBELSUS [Suspect]
     Active Substance: SEMAGLUTIDE
     Indication: Hypertension
     Dosage: 14.0MG UNKNOWN
     Route: 048
     Dates: start: 202310
  4. RYBELSUS [Suspect]
     Active Substance: SEMAGLUTIDE
     Indication: Weight decreased
     Dosage: 14.0MG UNKNOWN
     Route: 048
     Dates: start: 202310
  5. RYBELSUS [Suspect]
     Active Substance: SEMAGLUTIDE
     Indication: Hypertension
     Dosage: 14.0MG UNKNOWN
     Route: 048
  6. RYBELSUS [Suspect]
     Active Substance: SEMAGLUTIDE
     Indication: Weight decreased
     Dosage: 14.0MG UNKNOWN
     Route: 048

REACTIONS (2)
  - Throat cancer [Recovered/Resolved]
  - Off label use [Unknown]
